FAERS Safety Report 8593410 (Version 3)
Quarter: 2014Q1

REPORT INFORMATION
  Report Type: Spontaneous
  Country: US (occurrence: US)
  Receive Date: 20120604
  Receipt Date: 20140131
  Transmission Date: 20141002
  Serious: Yes (Hospitalization, Disabling, Other)
  Sender: FDA-Public Use
  Company Number: US-ASTRAZENECA-2012SE34880

PATIENT
  Age: 41 Year
  Sex: Male
  Weight: 99.8 kg

DRUGS (39)
  1. NEXIUM [Suspect]
     Indication: GASTROOESOPHAGEAL REFLUX DISEASE
     Route: 048
     Dates: start: 200205, end: 200306
  2. NEXIUM [Suspect]
     Indication: PEPTIC ULCER
     Route: 048
     Dates: start: 200205, end: 200306
  3. NEXIUM [Suspect]
     Indication: GASTROENTERITIS
     Route: 048
     Dates: start: 200205, end: 200306
  4. NEXIUM [Suspect]
     Indication: GASTROOESOPHAGEAL REFLUX DISEASE
     Route: 048
     Dates: start: 20020513
  5. NEXIUM [Suspect]
     Indication: PEPTIC ULCER
     Route: 048
     Dates: start: 20020513
  6. NEXIUM [Suspect]
     Indication: GASTROENTERITIS
     Route: 048
     Dates: start: 20020513
  7. NEXIUM [Suspect]
     Indication: GASTROOESOPHAGEAL REFLUX DISEASE
     Route: 048
     Dates: start: 20020514, end: 20020613
  8. NEXIUM [Suspect]
     Indication: PEPTIC ULCER
     Route: 048
     Dates: start: 20020514, end: 20020613
  9. NEXIUM [Suspect]
     Indication: GASTROENTERITIS
     Route: 048
     Dates: start: 20020514, end: 20020613
  10. NEXIUM [Suspect]
     Indication: GASTROOESOPHAGEAL REFLUX DISEASE
     Route: 048
     Dates: start: 200407, end: 200409
  11. NEXIUM [Suspect]
     Indication: PEPTIC ULCER
     Route: 048
     Dates: start: 200407, end: 200409
  12. NEXIUM [Suspect]
     Indication: GASTROENTERITIS
     Route: 048
     Dates: start: 200407, end: 200409
  13. NEXIUM [Suspect]
     Indication: GASTROOESOPHAGEAL REFLUX DISEASE
     Route: 048
     Dates: start: 20040929
  14. NEXIUM [Suspect]
     Indication: PEPTIC ULCER
     Route: 048
     Dates: start: 20040929
  15. NEXIUM [Suspect]
     Indication: GASTROENTERITIS
     Route: 048
     Dates: start: 20040929
  16. NEXIUM [Suspect]
     Indication: GASTROOESOPHAGEAL REFLUX DISEASE
     Route: 048
     Dates: start: 200410, end: 200501
  17. NEXIUM [Suspect]
     Indication: PEPTIC ULCER
     Route: 048
     Dates: start: 200410, end: 200501
  18. NEXIUM [Suspect]
     Indication: GASTROENTERITIS
     Route: 048
     Dates: start: 200410, end: 200501
  19. NEXIUM [Suspect]
     Indication: GASTROOESOPHAGEAL REFLUX DISEASE
     Route: 048
     Dates: start: 20041228
  20. NEXIUM [Suspect]
     Indication: PEPTIC ULCER
     Route: 048
     Dates: start: 20041228
  21. NEXIUM [Suspect]
     Indication: GASTROENTERITIS
     Route: 048
     Dates: start: 20041228
  22. OMEPRAZOLE [Suspect]
     Indication: GASTROOESOPHAGEAL REFLUX DISEASE
     Route: 048
  23. OMEPRAZOLE [Suspect]
     Indication: GASTROOESOPHAGEAL REFLUX DISEASE
     Route: 048
  24. OMEPRAZOLE [Suspect]
     Indication: GASTROOESOPHAGEAL REFLUX DISEASE
     Route: 048
     Dates: start: 201002
  25. OMEPRAZOLE [Suspect]
     Indication: GASTROOESOPHAGEAL REFLUX DISEASE
     Route: 048
     Dates: start: 20100519
  26. LANSOPRAZOLE [Concomitant]
  27. LANSOPRAZOLE [Concomitant]
     Dates: start: 2005
  28. LANSOPRAZOLE [Concomitant]
  29. PEPCID [Concomitant]
     Indication: DYSPEPSIA
     Dosage: ONCE OR TWICE
     Dates: start: 1990
  30. PEPCID [Concomitant]
     Indication: GASTROOESOPHAGEAL REFLUX DISEASE
     Dosage: ONCE OR TWICE
     Dates: start: 1990
  31. PEPCID [Concomitant]
     Indication: DYSPEPSIA
     Dates: start: 200502, end: 201002
  32. PEPCID [Concomitant]
     Indication: GASTROOESOPHAGEAL REFLUX DISEASE
     Dates: start: 200502, end: 201002
  33. ZANTAC [Concomitant]
     Indication: DYSPEPSIA
     Dosage: ONCE OR TWICE
     Dates: start: 1990
  34. TUMS [Concomitant]
     Indication: DYSPEPSIA
     Dosage: OTC
     Dates: start: 1992, end: 2001
  35. ROLAIDS [Concomitant]
     Indication: DYSPEPSIA
     Dosage: OTC
     Dates: start: 1992, end: 2001
  36. PEPTO-BISMOL [Concomitant]
     Indication: DYSPEPSIA
     Dosage: OTC
     Dates: start: 1992, end: 2001
  37. MYLANTA [Concomitant]
     Indication: DYSPEPSIA
     Dosage: OTC
     Dates: start: 1992, end: 2001
  38. REMERON [Concomitant]
     Indication: INSOMNIA
     Dates: end: 201010
  39. PROPRANOLOL [Concomitant]
     Indication: BLOOD PRESSURE
     Dates: start: 200812

REACTIONS (34)
  - Back injury [Unknown]
  - Gastroenteritis [Unknown]
  - Diabetic ketoacidosis [Unknown]
  - Chest pain [Unknown]
  - Hernia [Unknown]
  - Vomiting [Unknown]
  - Osteoporosis [Unknown]
  - Multiple fractures [Unknown]
  - Hand fracture [Unknown]
  - Intervertebral disc degeneration [Unknown]
  - Intervertebral disc protrusion [Unknown]
  - Meniscus injury [Unknown]
  - Spinal fracture [Unknown]
  - Infection parasitic [Unknown]
  - Headache [Unknown]
  - Limb injury [Unknown]
  - Back pain [Unknown]
  - Ligament sprain [Unknown]
  - Toothache [Unknown]
  - Tooth infection [Unknown]
  - Muscle strain [Unknown]
  - Urticaria [Unknown]
  - Pruritus [Unknown]
  - Pneumonia [Unknown]
  - Musculoskeletal chest pain [Unknown]
  - Bone pain [Unknown]
  - Arthritis [Unknown]
  - Atrophy [Unknown]
  - Depression [Unknown]
  - Diabetes mellitus [Unknown]
  - Androgen deficiency [Unknown]
  - Insomnia [Unknown]
  - Osteoarthritis [Unknown]
  - Spinal osteoarthritis [Unknown]
